FAERS Safety Report 16150284 (Version 1)
Quarter: 2019Q2

REPORT INFORMATION
  Report Type: Spontaneous
  Country: FR (occurrence: FR)
  Receive Date: 20190403
  Receipt Date: 20190403
  Transmission Date: 20190711
  Serious: Yes (Other)
  Sender: FDA-Public Use
  Company Number: PHHY2019FR068924

PATIENT
  Age: 2 Year
  Sex: Female
  Weight: 11.3 kg

DRUGS (8)
  1. PLITICAN [Suspect]
     Active Substance: ALIZAPRIDE HYDROCHLORIDE
     Indication: PROPHYLAXIS OF NAUSEA AND VOMITING
     Dosage: 20 MG, CYCLIC
     Route: 042
     Dates: start: 20190301, end: 20190304
  2. KIDROLASE [Suspect]
     Active Substance: ASPARAGINASE
     Dosage: 3120 IU, CYCLIC (J2 ET J9)
     Route: 042
     Dates: start: 20190309
  3. ZOPHREN [Suspect]
     Active Substance: ONDANSETRON
     Dosage: 4 MG, UNK (J1 ? J2, J8 ? J9)
     Route: 042
     Dates: start: 20190309
  4. ZOPHREN [Suspect]
     Active Substance: ONDANSETRON
     Indication: PROPHYLAXIS OF NAUSEA AND VOMITING
     Dosage: 4 MG, UNK (J1 ? J2, J8 ? J9)
     Route: 042
     Dates: start: 20190301
  5. CYTARABINE SANDOZ [Suspect]
     Active Substance: CYTARABINE
     Dosage: 1560 MG, CYCLIC (J1 ? J2; J8 ? J9)
     Route: 042
     Dates: start: 20190309
  6. CYTARABINE SANDOZ [Suspect]
     Active Substance: CYTARABINE
     Indication: ACUTE LEUKAEMIA
     Dosage: 1560 MG, CYCLIC (J1 ? J2; J8 ? J9)
     Route: 042
     Dates: start: 20190301
  7. PLITICAN [Suspect]
     Active Substance: ALIZAPRIDE HYDROCHLORIDE
     Dosage: 40 MG, UNK
     Route: 042
     Dates: end: 20190310
  8. KIDROLASE [Suspect]
     Active Substance: ASPARAGINASE
     Indication: ACUTE LEUKAEMIA
     Dosage: 3120 IU, CYCLIC (J2 ET J9)
     Route: 042
     Dates: start: 20190302

REACTIONS (2)
  - Pyrexia [Recovered/Resolved]
  - Erythema [Recovered/Resolved]

NARRATIVE: CASE EVENT DATE: 20190302
